FAERS Safety Report 4557104-2 (Version None)
Quarter: 2005Q1

REPORT INFORMATION
  Report Type: 
  Country: None (occurrence: None)
  Receive Date: 20050118
  Receipt Date: 20041215
  Transmission Date: 20050727
  Serious: No
  Sender: FDA-Public Use
  Company Number: 200411133BVD

PATIENT
  Age: 38 Year
  Sex: Male

DRUGS (5)
  1. AVELOX [Suspect]
     Indication: PNEUMONIA
     Dosage: 400 MG, TOTAL DAILY, INTRAVENOUS
     Route: 042
     Dates: start: 20041116
  2. AVELOX [Suspect]
     Indication: SEPSIS
     Dosage: 400 MG, TOTAL DAILY, INTRAVENOUS
     Route: 042
     Dates: start: 20041116
  3. AVELOX [Suspect]
     Indication: SINUSITIS
     Dosage: 400 MG, TOTAL DAILY, INTRAVENOUS
     Route: 042
     Dates: start: 20041116
  4. ACC LONG [Concomitant]
  5. RULID [Concomitant]

REACTIONS (1)
  - VISUAL ACUITY REDUCED [None]
